FAERS Safety Report 24393141 (Version 1)
Quarter: 2024Q4

REPORT INFORMATION
  Report Type: Spontaneous
  Country: US (occurrence: None)
  Receive Date: 20241002
  Receipt Date: 20241002
  Transmission Date: 20250114
  Serious: Yes (Hospitalization, Disabling, Other)
  Sender: Public
  Company Number: None

PATIENT
  Age: 79 Year
  Sex: Female
  Weight: 64.41 kg

DRUGS (11)
  1. DIETARY SUPPLEMENT [Suspect]
     Active Substance: DIETARY SUPPLEMENT
     Indication: Arthritis
     Dosage: OTHER FREQUENCY : 1 PILL AM;?
     Route: 048
     Dates: start: 20231201, end: 20240723
  2. OMEPRAZOLE [Suspect]
     Active Substance: OMEPRAZOLE
     Indication: Arthritis
     Dosage: FREQUENCY: 1 PILL AM
     Dates: start: 20231201, end: 20240723
  3. METFORMIN [Concomitant]
     Active Substance: METFORMIN HYDROCHLORIDE
  4. GLIMEPIRIDE [Concomitant]
     Active Substance: GLIMEPIRIDE
  5. PIOGLITAZONE [Concomitant]
     Active Substance: PIOGLITAZONE
  6. ROSUVASTATIN [Concomitant]
     Active Substance: ROSUVASTATIN
  7. IRON [Concomitant]
     Active Substance: IRON
  8. FISH OIL [Concomitant]
     Active Substance: FISH OIL
  9. vit. d3 [Concomitant]
  10. VITAMIN C [Concomitant]
     Active Substance: ASCORBIC ACID
  11. MINERALS\VITAMINS [Concomitant]
     Active Substance: MINERALS\VITAMINS

REACTIONS (8)
  - Alopecia [None]
  - Fatigue [None]
  - Blood iron decreased [None]
  - Anaemia [None]
  - Gastritis [None]
  - Gastric haemorrhage [None]
  - Product formulation issue [None]
  - Physical product label issue [None]

NARRATIVE: CASE EVENT DATE: 20240701
